FAERS Safety Report 9981618 (Version 1)
Quarter: 2014Q1

REPORT INFORMATION
  Report Type: Report from Study
  Country: US (occurrence: US)
  Receive Date: 20140307
  Receipt Date: 20140307
  Transmission Date: 20141002
  Serious: No
  Sender: FDA-Public Use
  Company Number: US-ABBVIE-13P-163-1180039-00

PATIENT
  Age: 46 Year
  Sex: Female

DRUGS (8)
  1. HUMIRA [Suspect]
     Indication: CROHN^S DISEASE
     Dates: start: 20131126, end: 20131126
  2. HUMIRA [Suspect]
     Dates: start: 20131210, end: 20131210
  3. HUMIRA [Suspect]
  4. ENTOCORT EC [Concomitant]
     Indication: PRODUCT USED FOR UNKNOWN INDICATION
  5. BUDESONIDE [Concomitant]
     Indication: PRODUCT USED FOR UNKNOWN INDICATION
  6. PRILOSEC [Concomitant]
     Indication: PRODUCT USED FOR UNKNOWN INDICATION
  7. CREON [Concomitant]
     Indication: PRODUCT USED FOR UNKNOWN INDICATION
  8. 6-MP [Concomitant]
     Indication: PRODUCT USED FOR UNKNOWN INDICATION

REACTIONS (5)
  - Oropharyngeal pain [Recovered/Resolved]
  - Asthenia [Recovered/Resolved]
  - Influenza like illness [Recovered/Resolved]
  - Injection site pain [Unknown]
  - Cough [Recovered/Resolved]
